FAERS Safety Report 8621800-8 (Version None)
Quarter: 2012Q3

REPORT INFORMATION
  Report Type: 
  Country: None (occurrence: None)
  Receive Date: 20120821
  Receipt Date: 20120821
  Transmission Date: 20120928
  Serious: Yes (Other)
  Sender: FDA-Public Use
  Company Number: None

PATIENT
  Sex: Male

DRUGS (1)
  1. ARGININE  HYDROCHLORIDE  PFIZER [Suspect]
     Indication: BLOOD GROWTH HORMONE
     Dosage: 5 ML/KG IV OVER 45 ONCE IV, ONCE
     Route: 042

REACTIONS (2)
  - HAEMATURIA [None]
  - BLOOD PRESSURE DECREASED [None]
